FAERS Safety Report 17517035 (Version 1)
Quarter: 2020Q1

REPORT INFORMATION
  Report Type: Spontaneous
  Country: US (occurrence: US)
  Receive Date: 20200307
  Receipt Date: 20200307
  Transmission Date: 20200409
  Serious: Yes (Hospitalization)
  Sender: FDA-Public Use
  Company Number: None

PATIENT
  Age: 10 Year
  Sex: Male
  Weight: 36 kg

DRUGS (3)
  1. MONTELUKAST SOD 5MG TAB CHEW [Suspect]
     Active Substance: MONTELUKAST SODIUM
     Indication: ASTHMA
     Dosage: ?          QUANTITY:1 TABLET(S);?
     Route: 048
     Dates: start: 20140106, end: 20190205
  2. QVAR [Concomitant]
     Active Substance: BECLOMETHASONE DIPROPIONATE
  3. ALBUTEROL INHALER [Concomitant]
     Active Substance: ALBUTEROL

REACTIONS (2)
  - Depression [None]
  - Suicidal ideation [None]

NARRATIVE: CASE EVENT DATE: 20180608
